FAERS Safety Report 5838959-8 (Version None)
Quarter: 2008Q3

REPORT INFORMATION
  Report Type: 
  Country: None (occurrence: None)
  Receive Date: 20080808
  Receipt Date: 20080808
  Transmission Date: 20090109
  Serious: Yes (Death, Hospitalization)
  Sender: FDA-Public Use
  Company Number: PHHO2004FR06082

PATIENT
  Sex: Male
  Weight: 90 kg

DRUGS (4)
  1. RAD 666 RAD+ [Suspect]
     Indication: LIVER TRANSPLANT
     Dosage: 1 MG, BID
     Route: 048
     Dates: start: 20000926, end: 20001010
  2. RAD 666 / RAD 001A [Suspect]
     Indication: LIVER TRANSPLANT
     Dosage: 2 MG / DAY
     Route: 048
     Dates: start: 20001011, end: 20031111
  3. NEORAL [Suspect]
     Indication: LIVER TRANSPLANT
     Dosage: 25 MG, BID
     Route: 048
     Dates: start: 20021127
  4. CORTANCYL [Suspect]
     Indication: LIVER TRANSPLANT
     Dosage: 25 MG / DAY
     Route: 048
     Dates: start: 20000926

REACTIONS (1)
  - PNEUMONIA [None]
